FAERS Safety Report 9507630 (Version 1)
Quarter: 2013Q3

REPORT INFORMATION
  Report Type: Spontaneous
  Country: JP (occurrence: None)
  Receive Date: 20130905
  Receipt Date: 20130905
  Transmission Date: 20140515
  Serious: Yes (Other)
  Sender: FDA-Public Use
  Company Number: 2013080139

PATIENT
  Age: 15 Year
  Sex: Male

DRUGS (1)
  1. 5-AMINOSALICYLIC ACID [Suspect]
     Indication: CROHN^S DISEASE

REACTIONS (2)
  - IgA nephropathy [None]
  - Tubulointerstitial nephritis [None]
